FAERS Safety Report 7503645-5 (Version None)
Quarter: 2011Q2

REPORT INFORMATION
  Report Type: 
  Country: None (occurrence: None)
  Receive Date: 20110525
  Receipt Date: 20110516
  Transmission Date: 20111010
  Serious: Yes (Other)
  Sender: FDA-Public Use
  Company Number: US-ASTRAZENECA-2011SE29915

PATIENT
  Age: 59 Year
  Sex: Male

DRUGS (1)
  1. NEXIUM [Suspect]
     Indication: HIATUS HERNIA
     Route: 048

REACTIONS (3)
  - PNEUMONIA [None]
  - CEREBROVASCULAR ACCIDENT [None]
  - ARTERIAL OCCLUSIVE DISEASE [None]
